FAERS Safety Report 21392138 (Version 3)
Quarter: 2024Q2

REPORT INFORMATION
  Report Type: Spontaneous
  Country: US (occurrence: US)
  Receive Date: 20220929
  Receipt Date: 20240607
  Transmission Date: 20240716
  Serious: No
  Sender: FDA-Public Use
  Company Number: US-NOVARTISTESTPH-NVSC2022US220668

PATIENT
  Sex: Male

DRUGS (2)
  1. MEKINIST [Suspect]
     Active Substance: TRAMETINIB DIMETHYL SULFOXIDE
     Indication: Neoplasm skin
     Dosage: 0.5 MG, QD
     Route: 048
     Dates: start: 20220823
  2. TAFINLAR [Suspect]
     Active Substance: DABRAFENIB MESYLATE
     Indication: Neoplasm skin
     Dosage: 150 MG, BID
     Route: 048
     Dates: start: 20220823

REACTIONS (2)
  - Rash [Unknown]
  - Product use in unapproved indication [Unknown]
